FAERS Safety Report 5301991-7 (Version None)
Quarter: 2007Q2

REPORT INFORMATION
  Report Type: 
  Country: None (occurrence: None)
  Receive Date: 20070416
  Receipt Date: 20070416
  Transmission Date: 20071010
  Serious: Yes (Other)
  Sender: FDA-Public Use
  Company Number: None

PATIENT
  Age: 4 Year
  Sex: Female
  Weight: 15.8759 kg

DRUGS (1)
  1. SINGULAIR [Suspect]
     Indication: ASTHMA
     Dosage: 1 TABLET   DAILY  PO
     Route: 048
     Dates: start: 20030501, end: 20060629

REACTIONS (3)
  - AGGRESSION [None]
  - HEAD BANGING [None]
  - SPEECH DISORDER [None]
